FAERS Safety Report 8602365-3 (Version None)
Quarter: 2012Q3

REPORT INFORMATION
  Report Type: 
  Country: None (occurrence: None)
  Receive Date: 20120817
  Receipt Date: 19931217
  Transmission Date: 20120928
  Serious: Yes (Hospitalization)
  Sender: FDA-Public Use
  Company Number: US-ROCHE-1101322

PATIENT
  Age: 55 Year
  Sex: Female

DRUGS (2)
  1. SYNTHROID [Concomitant]
  2. ACTIVASE [Suspect]
     Indication: ACUTE MYOCARDIAL INFARCTION

REACTIONS (6)
  - HYPOTENSION [None]
  - CARDIAC FAILURE CONGESTIVE [None]
  - BLOOD CREATINE PHOSPHOKINASE INCREASED [None]
  - URINE OUTPUT DECREASED [None]
  - ARRHYTHMIA [None]
  - HAEMATOCHEZIA [None]
